FAERS Safety Report 19415395 (Version 2)
Quarter: 2021Q2

REPORT INFORMATION
  Report Type: Spontaneous
  Country: JP (occurrence: JP)
  Receive Date: 20210615
  Receipt Date: 20210624
  Transmission Date: 20210717
  Serious: Yes (Death, Hospitalization, Other)
  Sender: FDA-Public Use
  Company Number: NVSJ2021JP008674

PATIENT
  Age: 48 Year
  Sex: Female

DRUGS (2)
  1. EXEMESTANE. [Concomitant]
     Active Substance: EXEMESTANE
     Indication: BREAST CANCER RECURRENT
     Dosage: UNK
     Route: 065
     Dates: start: 202006
  2. EVEROLIMUS. [Suspect]
     Active Substance: EVEROLIMUS
     Indication: BREAST CANCER RECURRENT
     Dosage: UNK
     Route: 048
     Dates: start: 202006

REACTIONS (11)
  - Breast cancer recurrent [Fatal]
  - Dysphagia [Unknown]
  - Pleural effusion [Unknown]
  - Metastases to lymph nodes [Unknown]
  - Renal impairment [Unknown]
  - Malignant neoplasm progression [Fatal]
  - Duodenal stenosis [Unknown]
  - Electrolyte imbalance [Unknown]
  - Venous stenosis [Unknown]
  - Malignant ascites [Unknown]
  - Dyspnoea [Unknown]

NARRATIVE: CASE EVENT DATE: 202006
